FAERS Safety Report 5135693-7 (Version None)
Quarter: 2006Q4

REPORT INFORMATION
  Report Type: 
  Country: None (occurrence: None)
  Receive Date: 20061026
  Receipt Date: 20060719
  Transmission Date: 20070319
  Serious: No
  Sender: FDA-Public Use
  Company Number: JP-BRISTOL-MYERS SQUIBB COMPANY-13451638

PATIENT
  Age: 27 Year
  Sex: Female

DRUGS (3)
  1. ENDOXAN INJ [Suspect]
     Indication: BREAST CANCER
     Route: 042
     Dates: start: 20060622, end: 20060622
  2. FLUOROURACIL [Suspect]
     Indication: BREAST CANCER
     Route: 042
     Dates: start: 20060622, end: 20060622
  3. FARMORUBICIN [Suspect]
     Indication: BREAST CANCER
     Route: 042
     Dates: start: 20060622, end: 20060622

REACTIONS (1)
  - BONE MARROW FAILURE [None]
